FAERS Safety Report 18585781 (Version 3)
Quarter: 2023Q1

REPORT INFORMATION
  Report Type: Spontaneous
  Country: NL (occurrence: NL)
  Receive Date: 20201207
  Receipt Date: 20230313
  Transmission Date: 20230418
  Serious: Yes (Hospitalization, Other)
  Sender: FDA-Public Use
  Company Number: NL-NAPPMUNDI-GBR-2020-0080769

PATIENT
  Sex: Male

DRUGS (61)
  1. MORPHINE [Suspect]
     Active Substance: MORPHINE
     Indication: Arthralgia
     Dosage: UNK
     Route: 065
  2. MORPHINE [Suspect]
     Active Substance: MORPHINE
     Indication: Intervertebral disc degeneration
  3. MORPHINE [Suspect]
     Active Substance: MORPHINE
     Indication: Knee operation
  4. MORPHINE [Suspect]
     Active Substance: MORPHINE
     Indication: Spinal operation
  5. MORPHINE [Suspect]
     Active Substance: MORPHINE
     Indication: Neck surgery
  6. TRAMADOL [Suspect]
     Active Substance: TRAMADOL
     Indication: Spinal operation
     Dosage: UNK
     Route: 065
  7. TRAMADOL [Suspect]
     Active Substance: TRAMADOL
     Indication: Arthralgia
  8. TRAMADOL [Suspect]
     Active Substance: TRAMADOL
     Indication: Neck surgery
  9. TRAMADOL [Suspect]
     Active Substance: TRAMADOL
     Indication: Intervertebral disc degeneration
  10. TRAMADOL [Suspect]
     Active Substance: TRAMADOL
     Indication: Knee operation
  11. FENTANYL [Suspect]
     Active Substance: FENTANYL
     Indication: Arthralgia
     Dosage: UNK
     Route: 065
  12. FENTANYL [Suspect]
     Active Substance: FENTANYL
     Indication: Intervertebral disc degeneration
  13. OXYCONTIN [Suspect]
     Active Substance: OXYCODONE HYDROCHLORIDE
     Indication: Intervertebral disc degeneration
     Dosage: 360 MG, DAILY
     Route: 065
  14. OXYCONTIN [Suspect]
     Active Substance: OXYCODONE HYDROCHLORIDE
     Indication: Arthralgia
     Dosage: UNK
     Route: 065
  15. OXYCONTIN [Suspect]
     Active Substance: OXYCODONE HYDROCHLORIDE
     Indication: Neck surgery
  16. OXYCONTIN [Suspect]
     Active Substance: OXYCODONE HYDROCHLORIDE
     Indication: Knee operation
  17. OXYCONTIN [Suspect]
     Active Substance: OXYCODONE HYDROCHLORIDE
     Indication: Spinal operation
  18. ACETAMINOPHEN\OXYCODONE HYDROCHLORIDE [Suspect]
     Active Substance: ACETAMINOPHEN\OXYCODONE HYDROCHLORIDE
     Indication: Intervertebral disc degeneration
     Dosage: UNK
     Route: 065
  19. ACETAMINOPHEN\OXYCODONE HYDROCHLORIDE [Suspect]
     Active Substance: ACETAMINOPHEN\OXYCODONE HYDROCHLORIDE
     Indication: Arthralgia
  20. ACETAMINOPHEN\OXYCODONE HYDROCHLORIDE [Suspect]
     Active Substance: ACETAMINOPHEN\OXYCODONE HYDROCHLORIDE
     Indication: Neck surgery
  21. ACETAMINOPHEN\OXYCODONE HYDROCHLORIDE [Suspect]
     Active Substance: ACETAMINOPHEN\OXYCODONE HYDROCHLORIDE
     Indication: Spinal operation
  22. ACETAMINOPHEN\OXYCODONE HYDROCHLORIDE [Suspect]
     Active Substance: ACETAMINOPHEN\OXYCODONE HYDROCHLORIDE
     Indication: Knee operation
  23. HYDROCODONE BITARTRATE AND ACETAMINOPHEN [Suspect]
     Active Substance: ACETAMINOPHEN\HYDROCODONE BITARTRATE
     Indication: Arthralgia
     Dosage: UNK
     Route: 065
  24. HYDROCODONE BITARTRATE AND ACETAMINOPHEN [Suspect]
     Active Substance: ACETAMINOPHEN\HYDROCODONE BITARTRATE
     Indication: Intervertebral disc degeneration
  25. HYDROCODONE BITARTRATE AND ACETAMINOPHEN [Suspect]
     Active Substance: ACETAMINOPHEN\HYDROCODONE BITARTRATE
     Indication: Knee operation
  26. HYDROCODONE BITARTRATE AND ACETAMINOPHEN [Suspect]
     Active Substance: ACETAMINOPHEN\HYDROCODONE BITARTRATE
     Indication: Spinal operation
  27. HYDROCODONE BITARTRATE AND ACETAMINOPHEN [Suspect]
     Active Substance: ACETAMINOPHEN\HYDROCODONE BITARTRATE
     Indication: Neck surgery
  28. OXYCODONE HYDROCHLORIDE [Suspect]
     Active Substance: OXYCODONE HYDROCHLORIDE
     Indication: Arthralgia
     Dosage: UNK
     Route: 065
  29. OXYCODONE HYDROCHLORIDE [Suspect]
     Active Substance: OXYCODONE HYDROCHLORIDE
     Indication: Intervertebral disc degeneration
     Dosage: UNK
     Route: 065
  30. OXYCODONE HYDROCHLORIDE [Suspect]
     Active Substance: OXYCODONE HYDROCHLORIDE
     Indication: Neck surgery
  31. OXYCODONE HYDROCHLORIDE [Suspect]
     Active Substance: OXYCODONE HYDROCHLORIDE
     Indication: Spinal operation
  32. OXYCODONE HYDROCHLORIDE [Suspect]
     Active Substance: OXYCODONE HYDROCHLORIDE
     Indication: Knee operation
  33. PERCOCET [Suspect]
     Active Substance: ACETAMINOPHEN\OXYCODONE HYDROCHLORIDE
     Indication: Arthralgia
     Dosage: UNK
     Route: 065
  34. PERCOCET [Suspect]
     Active Substance: ACETAMINOPHEN\OXYCODONE HYDROCHLORIDE
     Indication: Intervertebral disc degeneration
  35. PERCOCET [Suspect]
     Active Substance: ACETAMINOPHEN\OXYCODONE HYDROCHLORIDE
     Indication: Spinal operation
  36. PERCOCET [Suspect]
     Active Substance: ACETAMINOPHEN\OXYCODONE HYDROCHLORIDE
     Indication: Knee operation
  37. PERCOCET [Suspect]
     Active Substance: ACETAMINOPHEN\OXYCODONE HYDROCHLORIDE
     Indication: Neck surgery
  38. ACETAMINOPHEN\CODEINE PHOSPHATE [Suspect]
     Active Substance: ACETAMINOPHEN\CODEINE PHOSPHATE
     Indication: Arthralgia
     Dosage: UNK
     Route: 065
  39. ACETAMINOPHEN\CODEINE PHOSPHATE [Suspect]
     Active Substance: ACETAMINOPHEN\CODEINE PHOSPHATE
     Indication: Intervertebral disc degeneration
  40. ACETAMINOPHEN\CODEINE PHOSPHATE [Suspect]
     Active Substance: ACETAMINOPHEN\CODEINE PHOSPHATE
     Indication: Neck surgery
  41. ACETAMINOPHEN\CODEINE PHOSPHATE [Suspect]
     Active Substance: ACETAMINOPHEN\CODEINE PHOSPHATE
     Indication: Spinal operation
  42. ACETAMINOPHEN\CODEINE PHOSPHATE [Suspect]
     Active Substance: ACETAMINOPHEN\CODEINE PHOSPHATE
     Indication: Knee operation
  43. OXYCODONE HYDROCHLORIDE [Suspect]
     Active Substance: OXYCODONE HYDROCHLORIDE
     Indication: Intervertebral disc degeneration
     Dosage: UNK
     Route: 065
  44. OXYCODONE HYDROCHLORIDE [Suspect]
     Active Substance: OXYCODONE HYDROCHLORIDE
     Indication: Arthralgia
  45. LORTAB [Suspect]
     Active Substance: ACETAMINOPHEN\HYDROCODONE BITARTRATE
     Indication: Arthralgia
     Dosage: UNK
     Route: 065
  46. LORTAB [Suspect]
     Active Substance: ACETAMINOPHEN\HYDROCODONE BITARTRATE
     Indication: Intervertebral disc degeneration
  47. LORTAB [Suspect]
     Active Substance: ACETAMINOPHEN\HYDROCODONE BITARTRATE
     Indication: Neck surgery
  48. LORTAB [Suspect]
     Active Substance: ACETAMINOPHEN\HYDROCODONE BITARTRATE
     Indication: Knee operation
  49. LORTAB [Suspect]
     Active Substance: ACETAMINOPHEN\HYDROCODONE BITARTRATE
     Indication: Spinal operation
  50. DURAGESIC [Suspect]
     Active Substance: FENTANYL
     Indication: Arthralgia
     Dosage: UNK
     Route: 065
  51. DURAGESIC [Suspect]
     Active Substance: FENTANYL
     Indication: Intervertebral disc degeneration
  52. DURAGESIC [Suspect]
     Active Substance: FENTANYL
     Indication: Knee operation
  53. DURAGESIC [Suspect]
     Active Substance: FENTANYL
     Indication: Spinal operation
  54. DURAGESIC [Suspect]
     Active Substance: FENTANYL
     Indication: Neck surgery
  55. MS CONTIN [Suspect]
     Active Substance: MORPHINE SULFATE
     Indication: Intervertebral disc degeneration
     Dosage: UNK
     Route: 065
  56. MS CONTIN [Suspect]
     Active Substance: MORPHINE SULFATE
     Indication: Arthralgia
  57. MS CONTIN [Suspect]
     Active Substance: MORPHINE SULFATE
     Indication: Neck surgery
  58. MS CONTIN [Suspect]
     Active Substance: MORPHINE SULFATE
     Indication: Spinal operation
  59. MS CONTIN [Suspect]
     Active Substance: MORPHINE SULFATE
     Indication: Knee operation
  60. HYDROCODONE BITARTRATE [Suspect]
     Active Substance: HYDROCODONE BITARTRATE
     Indication: Product used for unknown indication
     Dosage: UNK
     Route: 065
  61. CORTISOL [Suspect]
     Active Substance: HYDROCORTISONE
     Indication: Product used for unknown indication
     Dosage: UNK
     Route: 065

REACTIONS (11)
  - Contusion [Unknown]
  - Joint destruction [Unknown]
  - Concussion [Unknown]
  - Blindness [Unknown]
  - Glaucoma [Unknown]
  - Road traffic accident [Unknown]
  - Quality of life decreased [Unknown]
  - Liver injury [Unknown]
  - Drug dependence [Unknown]
  - Overdose [Unknown]
  - Impaired driving ability [Unknown]
